FAERS Safety Report 18329622 (Version 1)
Quarter: 2020Q3

REPORT INFORMATION
  Report Type: Spontaneous
  Country: US (occurrence: US)
  Receive Date: 20200927
  Receipt Date: 20200927
  Transmission Date: 20201103
  Serious: Yes (Death)
  Sender: FDA-Public Use
  Company Number: None

PATIENT
  Age: 4 Decade
  Sex: Male

DRUGS (2)
  1. LOPINAVIR?RITONAVIR [Suspect]
     Active Substance: LOPINAVIR\RITONAVIR
     Indication: COVID-19
     Dates: start: 2020
  2. INTERFERON ALFA?2B [Suspect]
     Active Substance: INTERFERON ALFA-2B

REACTIONS (4)
  - Off label use [None]
  - Haemodialysis [None]
  - Respiratory failure [None]
  - Multiple organ dysfunction syndrome [None]
